FAERS Safety Report 14264839 (Version 2)
Quarter: 2018Q1

REPORT INFORMATION
  Report Type: Spontaneous
  Country: AR (occurrence: AR)
  Receive Date: 20171208
  Receipt Date: 20180109
  Transmission Date: 20180508
  Serious: Yes (Other)
  Sender: FDA-Public Use
  Company Number: AR-PFIZER INC-2017501211

PATIENT
  Age: 52 Year
  Sex: Female

DRUGS (1)
  1. IBRANCE [Suspect]
     Active Substance: PALBOCICLIB
     Indication: BREAST CANCER METASTATIC
     Dosage: 125 MG, CYCLIC (DAILY, 3/1 SCHEME)
     Dates: start: 20160224, end: 20171124

REACTIONS (5)
  - Haemorrhage [Unknown]
  - Second primary malignancy [Unknown]
  - Malaise [Not Recovered/Not Resolved]
  - Platelet count decreased [Unknown]
  - Oropharyngeal cancer [Unknown]

NARRATIVE: CASE EVENT DATE: 20171107
